FAERS Safety Report 4859657-3 (Version None)
Quarter: 2005Q4

REPORT INFORMATION
  Report Type: 
  Country: None (occurrence: None)
  Receive Date: 20051219
  Receipt Date: 20051208
  Transmission Date: 20060501
  Serious: Yes (Hospitalization)
  Sender: FDA-Public Use
  Company Number: PHHO2005GB19545

PATIENT
  Age: 33 Year
  Sex: Female

DRUGS (4)
  1. MISOPROSTOL [Concomitant]
     Indication: LABOUR INDUCTION
     Dosage: 50 UG
     Route: 067
     Dates: start: 20051123
  2. MISOPROSTOL [Concomitant]
     Dosage: 25 UG
     Route: 067
     Dates: end: 20051123
  3. RANITIDINE [Concomitant]
     Dosage: 150 MG
     Route: 065
  4. SYNTOCINON [Suspect]
     Indication: LABOUR INDUCTION
     Dosage: 10 IU
     Dates: start: 20051124, end: 20051124

REACTIONS (3)
  - ARTIFICIAL RUPTURE OF MEMBRANES [None]
  - CAESAREAN SECTION [None]
  - DRUG EXPOSURE DURING PREGNANCY [None]
